FAERS Safety Report 17264410 (Version 1)
Quarter: 2020Q1

REPORT INFORMATION
  Report Type: Spontaneous
  Country: ES (occurrence: ES)
  Receive Date: 20200113
  Receipt Date: 20200113
  Transmission Date: 20200409
  Serious: Yes (Hospitalization)
  Sender: FDA-Public Use
  Company Number: ES-BAYER-2020-003089

PATIENT
  Age: 74 Year
  Sex: Female

DRUGS (3)
  1. OMEPRAZOL [OMEPRAZOLE] [Concomitant]
     Active Substance: OMEPRAZOLE
     Dosage: UNK UNK, QD
     Dates: start: 20191204
  2. ALEVE [Suspect]
     Active Substance: NAPROXEN SODIUM
     Dosage: 500 MG, QD
     Route: 048
     Dates: start: 20191205, end: 20191208
  3. HYDROCHLOROTHIAZIDE;LOSARTAN [Concomitant]
     Active Substance: HYDROCHLOROTHIAZIDE\LOSARTAN
     Dosage: UNK UNK, QD
     Route: 048
     Dates: start: 20181120

REACTIONS (2)
  - Renal impairment [Recovering/Resolving]
  - Haematuria [Recovering/Resolving]

NARRATIVE: CASE EVENT DATE: 20191208
